FAERS Safety Report 10884051 (Version 4)
Quarter: 2016Q2

REPORT INFORMATION
  Report Type: Spontaneous
  Country: US (occurrence: US)
  Receive Date: 20150304
  Receipt Date: 20160502
  Transmission Date: 20160815
  Serious: No
  Sender: FDA-Public Use
  Company Number: US-AMGEN-USASP2015018674

PATIENT
  Age: 35 Year
  Sex: Female
  Weight: 72.56 kg

DRUGS (5)
  1. ENBREL [Suspect]
     Active Substance: ETANERCEPT
     Indication: PSORIATIC ARTHROPATHY
     Dosage: UNK, QWK
     Route: 065
     Dates: start: 201409, end: 201502
  2. PROGESTERONE. [Concomitant]
     Active Substance: PROGESTERONE
     Dosage: 1 INJ BID
     Route: 067
  3. FOLGARD [Concomitant]
     Dosage: 1 TAB QD
     Route: 048
  4. BABY ASA [Concomitant]
     Active Substance: ASPIRIN
     Dosage: 1 TAB QD
     Route: 048
  5. NABUMETONE. [Concomitant]
     Active Substance: NABUMETONE
     Dosage: UNK

REACTIONS (2)
  - Pregnancy [Recovered/Resolved]
  - Drug ineffective [Unknown]
